FAERS Safety Report 16807017 (Version 2)
Quarter: 2019Q4

REPORT INFORMATION
  Report Type: Spontaneous
  Country: FR (occurrence: FR)
  Receive Date: 20190913
  Receipt Date: 20191204
  Transmission Date: 20200122
  Serious: Yes (Other)
  Sender: FDA-Public Use
  Company Number: FR-MYLANLABS-2019M1084847

PATIENT
  Age: 18 Year
  Sex: Male
  Weight: 45 kg

DRUGS (6)
  1. MIDAZOLAM [Suspect]
     Active Substance: MIDAZOLAM HYDROCHLORIDE
     Indication: INDUCTION OF ANAESTHESIA
     Dosage: 2 MILLIGRAM, TOTAL
     Route: 042
     Dates: start: 20190327, end: 20190327
  2. CHLORHEXIDINE [Suspect]
     Active Substance: CHLORHEXIDINE
     Indication: INFECTION PROPHYLAXIS
     Dosage: 1 DOSAGE FORM, TOTAL
     Route: 003
     Dates: start: 20190327, end: 20190327
  3. CARBOCAINE [Suspect]
     Active Substance: MEPIVACAINE HYDROCHLORIDE
     Indication: INDUCTION OF ANAESTHESIA
     Dosage: 1 DOSAGE FORM, TOTAL
     Route: 030
     Dates: start: 20190327, end: 20190327
  4. CEFAZOLINE MYLAN [Suspect]
     Active Substance: CEFAZOLIN SODIUM
     Indication: ANTIBIOTIC PROPHYLAXIS
     Dosage: 2 GRAM, TOTAL
     Route: 042
     Dates: start: 20190327, end: 20190327
  5. ROPIVACAINE KABI [Suspect]
     Active Substance: ROPIVACAINE
     Indication: INDUCTION OF ANAESTHESIA
     Dosage: 1 DOSAGE FORM, TOTAL
     Route: 030
     Dates: start: 20190327, end: 20190327
  6. PROPOFOL. [Suspect]
     Active Substance: PROPOFOL
     Indication: INDUCTION OF ANAESTHESIA
     Dosage: 7 MILLIGRAM, TOTAL
     Route: 042
     Dates: start: 20190327, end: 20190327

REACTIONS (2)
  - Eyelid oedema [Recovered/Resolved]
  - Rash [Recovered/Resolved]

NARRATIVE: CASE EVENT DATE: 20190327
